FAERS Safety Report 4395074-0 (Version None)
Quarter: 2004Q3

REPORT INFORMATION
  Report Type: 
  Country: None (occurrence: None)
  Receive Date: 20040706
  Receipt Date: 20040629
  Transmission Date: 20050211
  Serious: Yes (Hospitalization, Other)
  Sender: FDA-Public Use
  Company Number: 2004-06-0099

PATIENT
  Age: 44 Year
  Sex: Male
  Weight: 102.0593 kg

DRUGS (15)
  1. PEG-INTRON [Suspect]
     Indication: HEPATITIS C
     Dosage: 150 MCG QW SUBCUTANEOUS
     Route: 058
     Dates: start: 20031031, end: 20040529
  2. REBETOL [Suspect]
     Indication: HEPATITIS C
     Dosage: 1400 MG QD ORAL
     Route: 048
     Dates: start: 20031031, end: 20040529
  3. LANTUS [Concomitant]
  4. HUMULIN I [Concomitant]
  5. OXYCODONE 5 [Concomitant]
  6. FLEXERIL [Concomitant]
  7. LEXAPRO [Concomitant]
  8. TRAZODONE HCL [Concomitant]
  9. LABETALOL HCL [Concomitant]
  10. NEXIUM [Concomitant]
  11. NEURONTIN [Concomitant]
  12. POTASSIUM CHLORIDE [Concomitant]
  13. CYCLOBENZAPRINE HCL [Concomitant]
  14. FUROSEMIDE [Concomitant]
  15. AMITRIPTYLINE HCL [Concomitant]

REACTIONS (18)
  - ABASIA [None]
  - ACTIVATED PARTIAL THROMBOPLASTIN TIME PROLONGED [None]
  - ASTHENIA [None]
  - ATAXIA [None]
  - ATELECTASIS [None]
  - BLOOD CALCIUM DECREASED [None]
  - BLOOD GLUCOSE INCREASED [None]
  - BRAIN SCAN ABNORMAL [None]
  - CEREBRAL INFARCTION [None]
  - CHRONIC INFLAMMATORY DEMYELINATING POLYRADICULONEUROPATHY [None]
  - ENCEPHALITIS BRAIN STEM [None]
  - FALL [None]
  - FATIGUE [None]
  - INFLAMMATION [None]
  - INTESTINAL HYPOMOTILITY [None]
  - PLATELET COUNT DECREASED [None]
  - URINE OUTPUT INCREASED [None]
  - VASCULITIS CEREBRAL [None]
